FAERS Safety Report 5292506-0 (Version None)
Quarter: 2007Q2

REPORT INFORMATION
  Report Type: 
  Country: None (occurrence: None)
  Receive Date: 20070410
  Receipt Date: 20070329
  Transmission Date: 20071010
  Serious: Yes (Hospitalization)
  Sender: FDA-Public Use
  Company Number: US-PFIZER INC-2007025647

PATIENT
  Sex: Female

DRUGS (13)
  1. DILANTIN [Suspect]
  2. COMMIT [Suspect]
     Indication: SMOKING CESSATION THERAPY
     Dates: start: 20060715, end: 20060715
  3. COFFEE [Suspect]
  4. TOBACCO [Suspect]
  5. ALPRAZOLAM [Concomitant]
  6. VENLAFAXINE HYDROCHLORIDE [Concomitant]
  7. VALACYCLOVIR HCL [Concomitant]
  8. BACLOFEN [Concomitant]
  9. CLONAZEPAM [Concomitant]
  10. MONTELUKAST SODIUM [Concomitant]
  11. LANSOPRAZOLE [Concomitant]
  12. TAMSULOSIN HCL [Concomitant]
  13. CARBAMAZEPINE [Concomitant]

REACTIONS (7)
  - BLOOD SODIUM DECREASED [None]
  - DIZZINESS [None]
  - MIGRAINE [None]
  - NERVOUSNESS [None]
  - THERAPEUTIC AGENT TOXICITY [None]
  - UTERINE POLYP [None]
  - VASOCONSTRICTION [None]
